FAERS Safety Report 8031405-8 (Version None)
Quarter: 2011Q4

REPORT INFORMATION
  Report Type: 
  Country: None (occurrence: None)
  Receive Date: 20111201
  Receipt Date: 20111013
  Transmission Date: 20120403
  Serious: Yes (Other)
  Sender: FDA-Public Use
  Company Number: 304881USA

PATIENT
  Age: 59 Year
  Sex: Female

DRUGS (3)
  1. NORETHINDRONE ACETATE AND ETHINYL ESTRADIOL [Suspect]
     Indication: HORMONE REPLACEMENT THERAPY
     Dosage: 1 MG/.005 MCG (1 IN 1 D), ORAL
     Route: 048
  2. EZETIMIBE [Concomitant]
  3. ALPRAZOLAM [Concomitant]

REACTIONS (3)
  - BREAST CANCER [None]
  - CRYING [None]
  - DEPRESSION [None]
